FAERS Safety Report 20632387 (Version 1)
Quarter: 2022Q1

REPORT INFORMATION
  Report Type: Spontaneous
  Country: US (occurrence: None)
  Receive Date: 20220323
  Receipt Date: 20220323
  Transmission Date: 20220423
  Serious: Yes (Hospitalization)
  Sender: FDA-Public Use
  Company Number: None

PATIENT

DRUGS (2)
  1. PHENYTOIN [Suspect]
     Active Substance: PHENYTOIN
  2. FOSPHENYTOIN [Suspect]
     Active Substance: FOSPHENYTOIN

REACTIONS (3)
  - Product prescribing error [None]
  - Incorrect drug administration rate [None]
  - Tissue injury [None]
